FAERS Safety Report 5078594-5 (Version None)
Quarter: 2006Q3

REPORT INFORMATION
  Report Type: 
  Country: None (occurrence: None)
  Receive Date: 20060808
  Receipt Date: 20060724
  Transmission Date: 20061208
  Serious: Yes (Hospitalization)
  Sender: FDA-Public Use
  Company Number: DK200605004188

PATIENT
  Age: 14 Year
  Sex: Male
  Weight: 51 kg

DRUGS (1)
  1. STRATTERA [Suspect]
     Indication: ATTENTION DEFICIT/HYPERACTIVITY DISORDER
     Dosage: 70 MG, ORAL
     Route: 048
     Dates: start: 20060228, end: 20060518

REACTIONS (11)
  - BLOOD ALBUMIN INCREASED [None]
  - BLOOD ALKALINE PHOSPHATASE INCREASED [None]
  - BLOOD LACTATE DEHYDROGENASE INCREASED [None]
  - DIARRHOEA [None]
  - EYE SWELLING [None]
  - GASTROENTERITIS [None]
  - HAEMOGLOBIN DECREASED [None]
  - INFECTION [None]
  - NAUSEA [None]
  - PETECHIAE [None]
  - RASH [None]
